FAERS Safety Report 4298825-9 (Version None)
Quarter: 2004Q1

REPORT INFORMATION
  Report Type: 
  Country: None (occurrence: None)
  Receive Date: 20040126
  Receipt Date: 20030912
  Transmission Date: 20041129
  Serious: No
  Sender: FDA-Public Use
  Company Number: USA030947103

PATIENT
  Age: 8 Year
  Sex: Male
  Weight: 35 kg

DRUGS (4)
  1. STRATTERA [Suspect]
     Indication: ATTENTION DEFICIT/HYPERACTIVITY DISORDER
     Dosage: 60 MG/DAY
     Dates: start: 20030501
  2. ALLEGRA [Concomitant]
  3. RHINOCORT [Concomitant]
  4. SINGULAIR [Concomitant]

REACTIONS (5)
  - DRUG EFFECT DECREASED [None]
  - INSOMNIA [None]
  - IRRITABILITY [None]
  - PRESCRIBED OVERDOSE [None]
  - PSYCHOMOTOR HYPERACTIVITY [None]
